FAERS Safety Report 11683129 (Version 2)
Quarter: 2016Q1

REPORT INFORMATION
  Report Type: Report from Study
  Country: BR (occurrence: BR)
  Receive Date: 20151029
  Receipt Date: 20160128
  Transmission Date: 20160525
  Serious: Yes (Hospitalization)
  Sender: FDA-Public Use
  Company Number: BR-ABBVIE-15K-020-1488525-00

PATIENT
  Age: 29 Year
  Sex: Female
  Weight: 88 kg

DRUGS (1)
  1. HUMIRA [Suspect]
     Active Substance: ADALIMUMAB
     Indication: PSORIASIS
     Route: 058
     Dates: start: 20140616, end: 201508

REACTIONS (6)
  - Pancreatitis [Recovered/Resolved]
  - Pancreatic enlargement [Unknown]
  - Groin pain [Recovered/Resolved]
  - Thrombosis [Recovered/Resolved]
  - Cholelithiasis [Unknown]
  - Local swelling [Recovered/Resolved]

NARRATIVE: CASE EVENT DATE: 20150711
